FAERS Safety Report 8963246 (Version 1)
Quarter: 2012Q4

REPORT INFORMATION
  Report Type: 
  Country: US (occurrence: US)
  Receive Date: 20121213
  Receipt Date: 20121213
  Transmission Date: 20130627
  Serious: Yes (Other)
  Sender: FDA-Public Use
  Company Number: US-PFIZER INC-2012313069

PATIENT
  Sex: Female

DRUGS (4)
  1. LYRICA [Suspect]
     Indication: FIBROMYALGIA
     Dosage: 50 mg, 2x/day
     Route: 048
  2. LYRICA [Suspect]
     Indication: OSTEOARTHRITIS
  3. LYRICA [Suspect]
     Indication: RHEUMATOID ARTHRITIS
  4. ARTHROTEC [Suspect]
     Dosage: UNK

REACTIONS (2)
  - Bedridden [Unknown]
  - Off label use [Unknown]
